FAERS Safety Report 7009607-9 (Version None)
Quarter: 2010Q3

REPORT INFORMATION
  Report Type: 
  Country: None (occurrence: None)
  Receive Date: 20100923
  Receipt Date: 20100913
  Transmission Date: 20110219
  Serious: Yes (Other)
  Sender: FDA-Public Use
  Company Number: BR-PFIZER INC-2010111796

PATIENT
  Age: 74 Year
  Sex: Female

DRUGS (2)
  1. FRONTAL XR [Suspect]
     Indication: RELAXATION THERAPY
     Dosage: 1 MG, 1X/DAY, AT NIGHT
     Route: 048
     Dates: start: 20070101
  2. FRONTAL XR [Suspect]
     Dosage: 2 MG, 1X/DAY, AT NIGHT
     Dates: end: 20100601

REACTIONS (4)
  - DRUG DEPENDENCE [None]
  - DRUG INEFFECTIVE [None]
  - FORMICATION [None]
  - GAIT DISTURBANCE [None]
